FAERS Safety Report 19610506 (Version 1)
Quarter: 2021Q3

REPORT INFORMATION
  Report Type: Spontaneous
  Country: GR (occurrence: GR)
  Receive Date: 20210726
  Receipt Date: 20210726
  Transmission Date: 20211014
  Serious: Yes (Death, Hospitalization)
  Sender: FDA-Public Use
  Company Number: NVSC2021GR143373

PATIENT
  Age: 45 Year
  Sex: Female
  Weight: 62 kg

DRUGS (25)
  1. INDOMETHACIN. [Concomitant]
     Active Substance: INDOMETHACIN
     Indication: PRODUCT USED FOR UNKNOWN INDICATION
     Dosage: UNK
     Route: 065
  2. FRESH FROZEN PLASMA [Concomitant]
     Active Substance: HUMAN PLASMA
     Indication: PRODUCT USED FOR UNKNOWN INDICATION
     Dosage: 2 IU, QD
     Route: 042
     Dates: start: 20210606, end: 20210606
  3. APOTEL [Concomitant]
     Active Substance: ACETAMINOPHEN
     Indication: PYREXIA
     Dosage: 1 G, QD
     Route: 042
     Dates: start: 20210606, end: 20210606
  4. FORTATHRIN [Concomitant]
     Active Substance: INDOMETHACIN
     Indication: PROPHYLAXIS
     Dosage: 75 MG, QD
     Route: 048
     Dates: start: 20210607, end: 20210609
  5. LASIX [Concomitant]
     Active Substance: FUROSEMIDE
     Indication: DYSPNOEA
     Dosage: 40 MG, QD
     Route: 048
     Dates: start: 20210419, end: 20210601
  6. VONCON [Concomitant]
     Active Substance: VANCOMYCIN HYDROCHLORIDE
     Indication: PYREXIA
     Dosage: 1 G, QD
     Route: 042
     Dates: start: 20210606
  7. FLUDARABINE [Suspect]
     Active Substance: FLUDARABINE PHOSPHATE
     Indication: PRODUCT USED FOR UNKNOWN INDICATION
     Dosage: 40 MG, QD
     Route: 042
     Dates: start: 20210603, end: 20210607
  8. CYCLOPHOSPHAMIDE. [Suspect]
     Active Substance: CYCLOPHOSPHAMIDE
     Indication: PRODUCT USED FOR UNKNOWN INDICATION
     Dosage: 3300 MG, QD
     Route: 042
     Dates: start: 20210601, end: 20210602
  9. LASIX [Concomitant]
     Active Substance: FUROSEMIDE
     Dosage: 40 MG, QD
     Route: 042
     Dates: start: 20210608, end: 20210608
  10. FENTADUR [Concomitant]
     Indication: ABDOMINAL PAIN
     Dosage: 12 UG, TID
     Route: 003
     Dates: start: 20210419
  11. LOSEC [Concomitant]
     Active Substance: OMEPRAZOLE
     Indication: PROPHYLAXIS
     Dosage: 20 MG, QD
     Route: 042
     Dates: start: 20210601, end: 20210607
  12. EMEND [Concomitant]
     Active Substance: APREPITANT
     Indication: PROPHYLAXIS
     Dosage: 125 MG, QD
     Route: 042
     Dates: start: 20210601, end: 20210601
  13. FENISTIL [Concomitant]
     Active Substance: DIMETHINDENE
     Indication: PROPHYLAXIS
     Dosage: 4 MG, QD
     Route: 042
     Dates: start: 20210608, end: 20210608
  14. TAZOCIN [Concomitant]
     Active Substance: PIPERACILLIN SODIUM\TAZOBACTAM SODIUM
     Indication: PYREXIA
     Dosage: 4.5 G, QD
     Route: 042
     Dates: start: 20210606
  15. APOTEL [Concomitant]
     Active Substance: ACETAMINOPHEN
     Indication: PROPHYLAXIS
     Dosage: 1 G, QD
     Route: 042
     Dates: start: 20210607
  16. BACTRIMEL [Concomitant]
     Active Substance: SULFAMETHOXAZOLE\TRIMETHOPRIM
     Indication: PROPHYLAXIS
     Dosage: 960 MG, QW
     Route: 048
     Dates: start: 20210601
  17. PROLEUKIN [Suspect]
     Active Substance: ALDESLEUKIN
     Indication: PRODUCT USED FOR UNKNOWN INDICATION
     Dosage: 33000000 IU, QD
     Route: 042
     Dates: start: 20210607, end: 20210608
  18. EMEND [Concomitant]
     Active Substance: APREPITANT
     Dosage: 80 MG, QD
     Route: 042
     Dates: start: 20210602, end: 20210603
  19. ONDASETRON [Concomitant]
     Active Substance: ONDANSETRON
     Indication: PROPHYLAXIS
     Dosage: 8 MG, QD
     Route: 042
     Dates: start: 20210601
  20. PEMBROLIZUMAB. [Suspect]
     Active Substance: PEMBROLIZUMAB
     Indication: PRODUCT USED FOR UNKNOWN INDICATION
     Dosage: 200 MG, QD
     Route: 042
     Dates: start: 20210519, end: 20210519
  21. HUMAN ALBUMIN [Concomitant]
     Active Substance: ALBUMIN HUMAN
     Indication: PRODUCT USED FOR UNKNOWN INDICATION
     Dosage: 100 G, QD
     Route: 042
     Dates: start: 20210601
  22. ALDACTONE [Concomitant]
     Active Substance: SPIRONOLACTONE
     Indication: PRODUCT USED FOR UNKNOWN INDICATION
     Dosage: 25 MG, QD
     Route: 048
     Dates: start: 20210419
  23. APOTEL [Concomitant]
     Active Substance: ACETAMINOPHEN
     Dosage: 1 G, QD
     Route: 042
     Dates: start: 20210608, end: 20210608
  24. PEPTAN [Concomitant]
     Indication: PROPHYLAXIS
     Dosage: 40 MG, QD
     Route: 048
     Dates: start: 20210607
  25. ZYLAPOUR [Concomitant]
     Active Substance: ALLOPURINOL
     Indication: PROPHYLAXIS
     Dosage: 300 MG, QD
     Route: 048
     Dates: start: 20210601, end: 20210604

REACTIONS (2)
  - Sepsis [Fatal]
  - Acute kidney injury [Not Recovered/Not Resolved]

NARRATIVE: CASE EVENT DATE: 20210609
